FAERS Safety Report 19005109 (Version 1)
Quarter: 2021Q1

REPORT INFORMATION
  Report Type: Spontaneous
  Country: US (occurrence: US)
  Receive Date: 20210312
  Receipt Date: 20210312
  Transmission Date: 20210420
  Serious: Yes (Other)
  Sender: FDA-Public Use
  Company Number: US-009507513-2103USA002785

PATIENT
  Sex: Male

DRUGS (3)
  1. KEYTRUDA [Suspect]
     Active Substance: PEMBROLIZUMAB
     Indication: COLON CANCER METASTATIC
     Dosage: 200 MILLIGRAM, CYCLICAL
     Route: 042
     Dates: start: 20210212, end: 20210212
  2. LENVATINIB MESYLATE [Suspect]
     Active Substance: LENVATINIB MESYLATE
     Indication: COLON CANCER METASTATIC
     Dosage: 20 MILLIGRAM, ONCE QD
     Route: 048
     Dates: start: 20210212, end: 20210302
  3. CX?024414. [Suspect]
     Active Substance: CX-024414
     Indication: COVID-19 IMMUNISATION
     Dosage: 1 DOSAGE FORM
     Dates: start: 202102

REACTIONS (4)
  - Malignant neoplasm progression [Unknown]
  - Headache [Unknown]
  - Asthenia [Unknown]
  - Vomiting [Unknown]

NARRATIVE: CASE EVENT DATE: 2021
